FAERS Safety Report 15754881 (Version 1)
Quarter: 2018Q4

REPORT INFORMATION
  Report Type: Spontaneous
  Country: SE (occurrence: SE)
  Receive Date: 20181224
  Receipt Date: 20181224
  Transmission Date: 20190205
  Serious: Yes (Other)
  Sender: FDA-Public Use
  Company Number: SE-AUROBINDO-AUR-APL-2014-13458

PATIENT
  Age: 15 Year
  Sex: Male

DRUGS (7)
  1. CYMBALTA [Suspect]
     Active Substance: DULOXETINE HYDROCHLORIDE
     Indication: PRODUCT USED FOR UNKNOWN INDICATION
     Dosage: 60 MG, DAILY
     Route: 065
     Dates: start: 201405
  2. OMEPRAZOLE 20MG [Suspect]
     Active Substance: OMEPRAZOLE
     Indication: PRODUCT USED FOR UNKNOWN INDICATION
     Dosage: 20 MG, DAILY
     Route: 065
  3. ORUDIS [Suspect]
     Active Substance: KETOPROFEN
     Indication: PRODUCT USED FOR UNKNOWN INDICATION
     Dosage: 50 DOSAGE FORM, UNK
     Route: 065
     Dates: start: 20140528
  4. PANODIL [Suspect]
     Active Substance: ACETAMINOPHEN
     Indication: PRODUCT USED FOR UNKNOWN INDICATION
     Dosage: 500 MG, DAILY
     Route: 065
     Dates: start: 20140528, end: 20140528
  5. ORUDIS [Suspect]
     Active Substance: KETOPROFEN
     Dosage: 200 MG, DAILY
     Route: 065
  6. CYMBALTA [Suspect]
     Active Substance: DULOXETINE HYDROCHLORIDE
     Dosage: 540 MILLIGRAM
     Route: 065
     Dates: start: 20140528
  7. OMEPRAZOLE 20MG [Suspect]
     Active Substance: OMEPRAZOLE
     Dosage: 240 MILLIGRAM
     Route: 065
     Dates: start: 20140528

REACTIONS (3)
  - Fatigue [Unknown]
  - Intentional self-injury [Unknown]
  - Toxicity to various agents [Unknown]

NARRATIVE: CASE EVENT DATE: 20140528
